FAERS Safety Report 9098346 (Version 3)
Quarter: 2013Q3

REPORT INFORMATION
  Report Type: Report from Study
  Country: JP (occurrence: JP)
  Receive Date: 20130213
  Receipt Date: 20130827
  Transmission Date: 20140515
  Serious: Yes (Death, Other)
  Sender: FDA-Public Use
  Company Number: JP-009507513-1302JPN004469

PATIENT
  Age: 64 Year
  Sex: Female
  Weight: 46 kg

DRUGS (11)
  1. TEMOZOLOMIDE [Suspect]
     Indication: GLIOBLASTOMA MULTIFORME
     Dosage: 75 MG/M2, QD
     Route: 041
     Dates: start: 20120531, end: 20120711
  2. TEMOZOLOMIDE [Suspect]
     Dosage: 150 MG/M2, QD
     Route: 041
     Dates: start: 20120813, end: 20120817
  3. TEMOZOLOMIDE [Suspect]
     Dosage: 150 MG/M2, QD
     Route: 041
     Dates: start: 20120910, end: 20120914
  4. TEMOZOLOMIDE [Suspect]
     Dosage: 150 MG/M2, QD
     Route: 041
     Dates: start: 20121015, end: 20121019
  5. BAKTAR [Concomitant]
     Indication: ANTIFUNGAL PROPHYLAXIS
     Dosage: DAILY DOSE UNKNOWN
     Route: 048
     Dates: start: 20120531, end: 20120808
  6. MAGMITT [Concomitant]
     Indication: PROPHYLAXIS
     Dosage: DAILY DOSE UNKNOWN
     Route: 048
     Dates: start: 20120715, end: 20121215
  7. HUMULIN R [Concomitant]
     Dosage: DAILY DOSAGE UNKNOWN
     Route: 041
     Dates: start: 20120514, end: 20120731
  8. RASTINON [Concomitant]
     Dosage: DAILY DOSE UNKNOWN
     Route: 048
     Dates: start: 20120808, end: 20120911
  9. GLIMICRON [Concomitant]
     Dosage: DAILY DOSE UNKNOWN
     Route: 048
     Dates: start: 20120912, end: 20120913
  10. TEGRETOL [Concomitant]
     Indication: CONVULSION
     Dosage: DAILY DOSE UNKNOWN
     Route: 048
     Dates: start: 20120625, end: 20121215
  11. KEPPRA [Concomitant]
     Indication: CONVULSION
     Dosage: DAILY DOSE UNKNOWN
     Route: 048
     Dates: start: 20120625, end: 20121215

REACTIONS (4)
  - Disease progression [Fatal]
  - Convulsion [Recovering/Resolving]
  - Injection site erythema [Recovered/Resolved]
  - Injection site swelling [Recovered/Resolved]
